FAERS Safety Report 10203485 (Version 1)
Quarter: 2014Q2

REPORT INFORMATION
  Report Type: Spontaneous
  Country: CA (occurrence: CA)
  Receive Date: 20140529
  Receipt Date: 20140529
  Transmission Date: 20141212
  Serious: Yes (Hospitalization, Other)
  Sender: FDA-Public Use
  Company Number: CA-ROCHE-1409356

PATIENT
  Sex: Male

DRUGS (4)
  1. XOLAIR [Suspect]
     Indication: ASTHMA
     Route: 058
     Dates: start: 20051017, end: 20060313
  2. XOLAIR [Suspect]
     Route: 058
     Dates: start: 20120202, end: 20120202
  3. PREDNISONE [Concomitant]
     Route: 065
  4. PREDNISONE [Concomitant]
     Dosage: DOSE INCREASED
     Route: 065
     Dates: start: 20140504

REACTIONS (4)
  - Asthma [Unknown]
  - Asthma exercise induced [Unknown]
  - Cyanosis [Unknown]
  - Malaise [Unknown]
